FAERS Safety Report 4973564-7 (Version None)
Quarter: 2006Q2

REPORT INFORMATION
  Report Type: 
  Country: None (occurrence: None)
  Receive Date: 20060413
  Receipt Date: 20060413
  Transmission Date: 20061013
  Serious: Yes (Other)
  Sender: FDA-Public Use
  Company Number: None

PATIENT
  Age: 13 Year
  Sex: Male
  Weight: 40 kg

DRUGS (15)
  1. CAMPTOSAR [Suspect]
     Indication: RHABDOMYOSARCOMA
     Dosage: 26 MG   DAILY X5, OFF 2, REP    IV DRIP
     Route: 041
     Dates: start: 20060227, end: 20060410
  2. CAMPTOSAR [Suspect]
  3. CAMPTOSAR [Suspect]
  4. CAMPTOSAR [Suspect]
  5. CAMPTOSAR [Suspect]
  6. CAMPTOSAR [Suspect]
  7. BACTRIM [Concomitant]
  8. ONDANSETRON [Concomitant]
  9. DIAZEPAM [Concomitant]
  10. LOPERAMIDE [Concomitant]
  11. IRINOTECAN HCL [Concomitant]
  12. CELEBREX [Concomitant]
  13. AMOXICILLIN [Concomitant]
  14. DEXAMETHASONE [Concomitant]
  15. NS + KCL + ONDANSETRON [Concomitant]

REACTIONS (2)
  - BLOOD URINE PRESENT [None]
  - HAEMATURIA [None]
